FAERS Safety Report 8340523 (Version 2)
Quarter: 2015Q1

REPORT INFORMATION
  Report Type: Report from Study
  Country: US (occurrence: US)
  Receive Date: 20120117
  Receipt Date: 20150309
  Transmission Date: 20150721
  Serious: Yes (Death, Hospitalization)
  Sender: FDA-Public Use
  Company Number: US-ROCHE-1028297

PATIENT
  Age: 58 Year
  Sex: Male

DRUGS (20)
  1. ZOFRAN [Concomitant]
     Active Substance: ONDANSETRON HYDROCHLORIDE
     Route: 065
  2. MILK OF MAGNESIA [Concomitant]
     Active Substance: MAGNESIUM HYDROXIDE
  3. 5-FLUOROURACIL [Concomitant]
     Active Substance: FLUOROURACIL
     Route: 065
  4. LEUCOVORIN [Concomitant]
     Active Substance: LEUCOVORIN
     Route: 065
  5. OXALIPLATIN. [Concomitant]
     Active Substance: OXALIPLATIN
     Route: 065
  6. ATIVAN [Concomitant]
     Active Substance: LORAZEPAM
     Route: 065
  7. AVASTIN [Suspect]
     Active Substance: BEVACIZUMAB
     Indication: HEPATOBILIARY CANCER
     Route: 042
     Dates: start: 20080429
  8. VITAMIN C [Concomitant]
     Active Substance: ASCORBIC ACID
  9. DEXAMETHASONE. [Concomitant]
     Active Substance: DEXAMETHASONE
  10. PHENERGAN [Concomitant]
     Active Substance: PROMETHAZINE HYDROCHLORIDE
     Route: 065
  11. OXYCONTIN [Concomitant]
     Active Substance: OXYCODONE HYDROCHLORIDE
  12. LASIX [Concomitant]
     Active Substance: FUROSEMIDE
     Route: 065
  13. EFFEXOR XR [Concomitant]
     Active Substance: VENLAFAXINE HYDROCHLORIDE
     Route: 048
  14. LORAZEPAM. [Concomitant]
     Active Substance: LORAZEPAM
  15. DECADRON [Concomitant]
     Active Substance: DEXAMETHASONE
     Route: 042
  16. VITAMIN E [Concomitant]
     Active Substance: .ALPHA.-TOCOPHEROL
  17. TYLENOL [Concomitant]
     Active Substance: ACETAMINOPHEN
  18. PALONOSETRON [Concomitant]
     Active Substance: PALONOSETRON
     Route: 065
  19. ALOXI [Concomitant]
     Active Substance: PALONOSETRON HYDROCHLORIDE
     Route: 065
  20. OXYCODONE [Concomitant]
     Active Substance: OXYCODONE

REACTIONS (21)
  - Abdominal pain [Unknown]
  - Decreased appetite [Unknown]
  - Insomnia [Unknown]
  - Muscular weakness [Unknown]
  - Vomiting [Unknown]
  - Neuropathy peripheral [Recovered/Resolved]
  - Death [Fatal]
  - Nausea [Unknown]
  - Diarrhoea [Unknown]
  - Dehydration [Unknown]
  - Oropharyngeal pain [Unknown]
  - Off label use [Unknown]
  - Fatigue [Unknown]
  - Confusional state [Unknown]
  - Dyspnoea [Unknown]
  - Ketoacidosis [Unknown]
  - Tachycardia [Unknown]
  - Biliary cancer metastatic [Unknown]
  - Ascites [Unknown]
  - Constipation [Recovered/Resolved]
  - Oral pain [Recovered/Resolved]

NARRATIVE: CASE EVENT DATE: 20080728
